FAERS Safety Report 10047009 (Version 1)
Quarter: 2014Q1

REPORT INFORMATION
  Report Type: Spontaneous
  Country: US (occurrence: US)
  Receive Date: 20140331
  Receipt Date: 20140331
  Transmission Date: 20141002
  Serious: Yes (Death)
  Sender: FDA-Public Use
  Company Number: US-EISAI INC-E2020-13763-SPO-US

PATIENT
  Sex: 0

DRUGS (2)
  1. ARICEPT [Suspect]
     Indication: DEMENTIA ALZHEIMER^S TYPE
     Dosage: UNKNOWN
     Route: 048
     Dates: start: 2011
  2. WATER PILL [Concomitant]

REACTIONS (1)
  - Cardiac failure congestive [Fatal]
